FAERS Safety Report 24113298 (Version 1)
Quarter: 2024Q3

REPORT INFORMATION
  Report Type: Spontaneous
  Country: JP (occurrence: JP)
  Receive Date: 20240719
  Receipt Date: 20240719
  Transmission Date: 20241017
  Serious: Yes (Life-Threatening)
  Sender: MALLINCKRODT
  Company Number: JP-MALLINCKRODT-MNK202404635

PATIENT
  Age: 1 Day
  Weight: 1 kg

DRUGS (2)
  1. NITRIC OXIDE [Suspect]
     Active Substance: NITRIC OXIDE
     Indication: Newborn persistent pulmonary hypertension
     Dosage: UNKNOWN
     Route: 055
  2. EPINEPHRINE HYDROCHLORIDE [Concomitant]
     Active Substance: EPINEPHRINE HYDROCHLORIDE
     Dosage: UNKNOWN
     Route: 039

REACTIONS (4)
  - Intraventricular haemorrhage [Unknown]
  - Hydrocephalus [Unknown]
  - Disease progression [Unknown]
  - Product use issue [Unknown]
